FAERS Safety Report 5610066-9 (Version None)
Quarter: 2008Q1

REPORT INFORMATION
  Report Type: 
  Country: None (occurrence: None)
  Receive Date: 20080131
  Receipt Date: 20071218
  Transmission Date: 20080703
  Serious: No
  Sender: FDA-Public Use
  Company Number: US-BAYER-200716958NA

PATIENT
  Age: 33 Year
  Sex: Female
  Weight: 71 kg

DRUGS (3)
  1. YAZ [Suspect]
     Indication: CONTRACEPTION
     Route: 048
     Dates: start: 20071104
  2. PSEUDOVENT [Concomitant]
     Indication: PRODUCTIVE COUGH
  3. OMNICEF [Concomitant]

REACTIONS (1)
  - WEIGHT INCREASED [None]
